FAERS Safety Report 10085959 (Version 2)
Quarter: 2014Q2

REPORT INFORMATION
  Report Type: Spontaneous
  Country: MX (occurrence: None)
  Receive Date: 20140416
  Receipt Date: 20140425
  Transmission Date: 20141212
  Serious: Yes (Hospitalization)
  Sender: FDA-Public Use
  Company Number: FK201401301

PATIENT
  Age: 33 Year
  Sex: Female

DRUGS (2)
  1. METHOTREXATE [Suspect]
     Indication: ECTOPIC PREGNANCY
     Dosage: 1 MG/KG, FIRST DOSE
     Route: 030
  2. FOLINIC ACID (FOLINIC ACID) [Concomitant]

REACTIONS (5)
  - Off label use [None]
  - Treatment failure [None]
  - Human chorionic gonadotropin increased [None]
  - Drug ineffective [None]
  - Exposure during pregnancy [None]
